FAERS Safety Report 15958705 (Version 1)
Quarter: 2019Q1

REPORT INFORMATION
  Report Type: Spontaneous
  Country: US (occurrence: US)
  Receive Date: 20190213
  Receipt Date: 20190213
  Transmission Date: 20190417
  Serious: No
  Sender: FDA-Public Use
  Company Number: US-PURDUE-USA-2018-0144847

PATIENT
  Age: 36 Year
  Sex: Female

DRUGS (2)
  1. BUTRANS [Suspect]
     Active Substance: BUPRENORPHINE
     Indication: PAIN
     Dosage: 10 MCG/HR, WEEKLY
     Route: 062
  2. BUTRANS [Suspect]
     Active Substance: BUPRENORPHINE
     Indication: INTERVERTEBRAL DISC DISORDER
     Dosage: 15 MCG/HR, WEEKLY
     Route: 062
     Dates: start: 20180906

REACTIONS (6)
  - Dermatitis contact [Not Recovered/Not Resolved]
  - Wrong technique in product usage process [Unknown]
  - Application site vesicles [Unknown]
  - Application site erythema [Recovered/Resolved]
  - Product adhesion issue [Unknown]
  - Rubber sensitivity [Not Recovered/Not Resolved]

NARRATIVE: CASE EVENT DATE: 201809
